FAERS Safety Report 13892621 (Version 1)
Quarter: 2017Q3

REPORT INFORMATION
  Report Type: Spontaneous
  Country: US (occurrence: US)
  Receive Date: 20170822
  Receipt Date: 20170822
  Transmission Date: 20171127
  Serious: Yes (Other)
  Sender: FDA-Public Use
  Company Number: PHHY2017US121642

PATIENT
  Age: 65 Year
  Sex: Female

DRUGS (1)
  1. GILENYA [Suspect]
     Active Substance: FINGOLIMOD HYDROCHLORIDE
     Indication: RELAPSING-REMITTING MULTIPLE SCLEROSIS
     Route: 048
     Dates: start: 201105, end: 201402

REACTIONS (6)
  - Snoring [Recovering/Resolving]
  - Sleep apnoea syndrome [Recovering/Resolving]
  - Atrial fibrillation [Recovering/Resolving]
  - Fatigue [Recovering/Resolving]
  - Dyspnoea exertional [Recovering/Resolving]
  - Sleep disorder [Recovering/Resolving]

NARRATIVE: CASE EVENT DATE: 201211
